FAERS Safety Report 24624069 (Version 1)
Quarter: 2024Q4

REPORT INFORMATION
  Report Type: Spontaneous
  Country: US (occurrence: None)
  Receive Date: 20241115
  Receipt Date: 20241115
  Transmission Date: 20250115
  Serious: No
  Sender: Public
  Company Number: None

PATIENT
  Age: 40 Year
  Sex: Female
  Weight: 111 kg

DRUGS (1)
  1. INFLIXIMAB-ABDA [Suspect]
     Active Substance: INFLIXIMAB-ABDA
     Indication: Psoriasis

REACTIONS (4)
  - Hypotension [None]
  - Pruritus [None]
  - Hypersensitivity [None]
  - Drug specific antibody present [None]

NARRATIVE: CASE EVENT DATE: 20240730
